FAERS Safety Report 5811949-7 (Version None)
Quarter: 2008Q3

REPORT INFORMATION
  Report Type: 
  Country: None (occurrence: None)
  Receive Date: 20080716
  Receipt Date: 20080707
  Transmission Date: 20090109
  Serious: Yes (Other)
  Sender: FDA-Public Use
  Company Number: US-ELI_LILLY_AND_COMPANY-US200805003633

PATIENT
  Sex: Female

DRUGS (3)
  1. EVISTA [Suspect]
     Indication: OSTEOPOROSIS
     Dosage: 60 MG, UNK
     Dates: start: 20060101
  2. CALCIUM [Concomitant]
  3. VITAMIN D [Concomitant]

REACTIONS (5)
  - BUNION [None]
  - GAIT DISTURBANCE [None]
  - INFLAMMATION [None]
  - MUSCLE SPASMS [None]
  - SLEEP DISORDER [None]
